FAERS Safety Report 4787387-5 (Version None)
Quarter: 2005Q4

REPORT INFORMATION
  Report Type: 
  Country: None (occurrence: None)
  Receive Date: 20051003
  Receipt Date: 20050920
  Transmission Date: 20060501
  Serious: Yes (Death)
  Sender: FDA-Public Use
  Company Number: 2005131423

PATIENT
  Age: 56 Year
  Sex: Male

DRUGS (4)
  1. SILDENAFIL CITRATE [Suspect]
     Indication: ILL-DEFINED DISORDER
  2. MIRTAZAPINE [Suspect]
     Indication: ILL-DEFINED DISORDER
  3. DIAZEPAM [Suspect]
     Indication: ILL-DEFINED DISORDER
  4. ETHANOL (ETHANOL) [Suspect]
     Indication: ILL-DEFINED DISORDER

REACTIONS (1)
  - SUDDEN DEATH [None]
